FAERS Safety Report 20509033 (Version 1)
Quarter: 2022Q1

REPORT INFORMATION
  Report Type: Spontaneous
  Country: US (occurrence: US)
  Receive Date: 20220223
  Receipt Date: 20220223
  Transmission Date: 20220423
  Serious: Yes (Other)
  Sender: FDA-Public Use
  Company Number: US-DSPHARMA-2022SUN000529

PATIENT
  Sex: Female
  Weight: 122 kg

DRUGS (22)
  1. LATUDA [Suspect]
     Active Substance: LURASIDONE HYDROCHLORIDE
     Dosage: 80 MG
     Route: 048
  2. PRAZOSIN HYDROCHLORIDE [Concomitant]
     Active Substance: PRAZOSIN HYDROCHLORIDE
     Dosage: 5 MG, QD, EVENING
     Route: 048
     Dates: start: 20210804
  3. TIZANIDINE HYDROCHLORIDE [Concomitant]
     Active Substance: TIZANIDINE HYDROCHLORIDE
     Dosage: 4 MG
     Route: 048
     Dates: start: 20210804
  4. SERTRALINE [Concomitant]
     Active Substance: SERTRALINE HYDROCHLORIDE
     Dosage: 100 MG QD (1.5 TABLET)
     Route: 048
     Dates: start: 20211201
  5. LITHIUM CARBONATE [Concomitant]
     Active Substance: LITHIUM CARBONATE
     Dosage: 300 MG, BID
     Route: 048
     Dates: start: 20210901
  6. BUSPIRONE HYDROCHLORIDE [Concomitant]
     Active Substance: BUSPIRONE HYDROCHLORIDE
     Dosage: 30 MG, BID
     Route: 048
     Dates: start: 20210804
  7. QUETIAPINE FUMARATE [Concomitant]
     Active Substance: QUETIAPINE FUMARATE
     Dosage: 200 MG, QD, EVENING
     Route: 048
     Dates: start: 20211122
  8. UBRELVY [Concomitant]
     Active Substance: UBROGEPANT
     Dosage: 50 MG, QD
     Route: 048
     Dates: start: 20200901
  9. TOPIRAMATE [Concomitant]
     Active Substance: TOPIRAMATE
     Dosage: 50 MG, BID
     Route: 048
     Dates: start: 20200901
  10. PROPRANOLOL HYDROCHLORIDE [Concomitant]
     Active Substance: PROPRANOLOL HYDROCHLORIDE
     Dosage: 120 MG,QD,MORNING
     Route: 048
     Dates: start: 20200901
  11. EPIPEN [Concomitant]
     Active Substance: EPINEPHRINE
     Dosage: 0.3MG/0.3ML
     Route: 051
     Dates: start: 20200605
  12. VITAMIN D [Concomitant]
     Active Substance: VITAMIN D NOS
     Dosage: 5000
     Route: 048
     Dates: start: 20200605
  13. RELPAX [Concomitant]
     Active Substance: ELETRIPTAN HYDROBROMIDE
     Dosage: 20 MG
     Route: 048
     Dates: start: 20200605
  14. CLARITIN [Concomitant]
     Active Substance: LORATADINE
     Dosage: 10 MG, QD
     Route: 048
     Dates: start: 20200605
  15. ALBUTEROL [Concomitant]
     Active Substance: ALBUTEROL
     Dosage: 90 ?G, QD
     Route: 055
     Dates: start: 20200605
  16. XARELTO [Concomitant]
     Active Substance: RIVAROXABAN
     Dosage: 10 MG, QD
     Route: 048
     Dates: start: 20200528
  17. LEVOTHYROXINE [Concomitant]
     Active Substance: LEVOTHYROXINE
     Dosage: 112 ?G, QD
     Route: 048
     Dates: start: 20200528
  18. DILTIAZEM HYDROCHLORIDE [Concomitant]
     Active Substance: DILTIAZEM HYDROCHLORIDE
     Dosage: 60 MG, QD
     Route: 048
     Dates: start: 20200426
  19. CELECOXIB [Concomitant]
     Active Substance: CELECOXIB
     Dosage: 200 MG, QD
     Route: 048
     Dates: start: 20200423
  20. ROSUVASTATIN CALCIUM [Concomitant]
     Active Substance: ROSUVASTATIN CALCIUM
     Dosage: 10 MG, QD
     Route: 048
     Dates: start: 20200113
  21. CYMBALTA [Concomitant]
     Active Substance: DULOXETINE HYDROCHLORIDE
     Dosage: 60 MG
     Route: 065
  22. PROZAC [Concomitant]
     Active Substance: FLUOXETINE HYDROCHLORIDE
     Dosage: 50 MG
     Route: 065

REACTIONS (14)
  - Major depression [Unknown]
  - Suicidal ideation [Unknown]
  - Post-traumatic stress disorder [Unknown]
  - Borderline personality disorder [Unknown]
  - Psychological trauma [Unknown]
  - Feeling abnormal [Unknown]
  - Anger [Unknown]
  - Depression [Unknown]
  - Tremor [Unknown]
  - Fatigue [Unknown]
  - Somnolence [Unknown]
  - Anxiety [Unknown]
  - Insomnia [Unknown]
  - Therapy interrupted [Unknown]
